FAERS Safety Report 8592443-X (Version None)
Quarter: 2012Q3

REPORT INFORMATION
  Report Type: 
  Country: None (occurrence: None)
  Receive Date: 20120814
  Receipt Date: 20120805
  Transmission Date: 20120928
  Serious: No
  Sender: FDA-Public Use
  Company Number: US-BAYER-2012-080725

PATIENT
  Sex: Female

DRUGS (3)
  1. EXCEDRIN (MIGRAINE) [Concomitant]
  2. ALEVE (CAPLET) [Suspect]
     Indication: DYSMENORRHOEA
     Route: 048
  3. PAMPRIN TAB [Concomitant]

REACTIONS (1)
  - DYSMENORRHOEA [None]
